FAERS Safety Report 6345303-9 (Version None)
Quarter: 2009Q3

REPORT INFORMATION
  Report Type: 
  Country: None (occurrence: None)
  Receive Date: 20090909
  Receipt Date: 20090903
  Transmission Date: 20100115
  Serious: Yes (Other)
  Sender: FDA-Public Use
  Company Number: US-ALLERGAN-0912394US

PATIENT
  Age: 44 Year
  Sex: Female

DRUGS (3)
  1. PRED FORTE [Suspect]
     Indication: IRIDOCYCLITIS
     Dosage: UNK
     Route: 047
  2. REBIF [Suspect]
     Indication: MULTIPLE SCLEROSIS
     Dosage: 44 A?G, 3 TIMES PER WEEK
     Route: 058
     Dates: start: 20070620
  3. IBUPROFEN [Concomitant]
     Indication: PREMEDICATION
     Dosage: UNK

REACTIONS (1)
  - CATARACT [None]
